FAERS Safety Report 16556538 (Version 2)
Quarter: 2019Q3

REPORT INFORMATION
  Report Type: Spontaneous
  Country: US (occurrence: US)
  Receive Date: 20190711
  Receipt Date: 20190820
  Transmission Date: 20191004
  Serious: Yes (Death)
  Sender: FDA-Public Use
  Company Number: US-SYNEX-T201904777

PATIENT
  Age: 50 Year
  Sex: Male

DRUGS (1)
  1. INOMAX [Suspect]
     Active Substance: NITRIC OXIDE
     Indication: HYPOXIA
     Dosage: 40 PPM CONTINUOUS IN LINE WITH VENTILATOR
     Route: 065
     Dates: start: 20190626, end: 20190626

REACTIONS (2)
  - Product use issue [Unknown]
  - Cardiac failure [Fatal]

NARRATIVE: CASE EVENT DATE: 20190626
